FAERS Safety Report 24059207 (Version 2)
Quarter: 2024Q4

REPORT INFORMATION
  Report Type: Report from Study
  Country: BR (occurrence: BR)
  Receive Date: 20240708
  Receipt Date: 20241028
  Transmission Date: 20250114
  Serious: Yes (Other)
  Sender: TAKEDA
  Company Number: BR-TAKEDA-2023TUS090303

PATIENT
  Age: 7 Year
  Sex: Female
  Weight: 23 kg

DRUGS (27)
  1. TEDUGLUTIDE [Suspect]
     Active Substance: TEDUGLUTIDE
     Indication: Short-bowel syndrome
     Dosage: 5 MILLIGRAM
     Route: 058
  2. TEDUGLUTIDE [Suspect]
     Active Substance: TEDUGLUTIDE
     Indication: Short-bowel syndrome
     Dosage: 5 MILLIGRAM
     Route: 058
  3. TEDUGLUTIDE [Suspect]
     Active Substance: TEDUGLUTIDE
     Indication: Short-bowel syndrome
     Dosage: 5 MILLIGRAM
     Route: 058
  4. TEDUGLUTIDE [Suspect]
     Active Substance: TEDUGLUTIDE
     Indication: Short-bowel syndrome
     Dosage: 5 MILLIGRAM
     Route: 058
  5. TEDUGLUTIDE [Suspect]
     Active Substance: TEDUGLUTIDE
     Indication: Functional gastrointestinal disorder
     Dosage: 0.05 MILLIGRAM/KILOGRAM, QD
     Route: 058
  6. TEDUGLUTIDE [Suspect]
     Active Substance: TEDUGLUTIDE
     Indication: Functional gastrointestinal disorder
     Dosage: 0.05 MILLIGRAM/KILOGRAM, QD
     Route: 058
  7. TEDUGLUTIDE [Suspect]
     Active Substance: TEDUGLUTIDE
     Indication: Functional gastrointestinal disorder
     Dosage: 0.05 MILLIGRAM/KILOGRAM, QD
     Route: 058
  8. TEDUGLUTIDE [Suspect]
     Active Substance: TEDUGLUTIDE
     Indication: Functional gastrointestinal disorder
     Dosage: 0.05 MILLIGRAM/KILOGRAM, QD
     Route: 058
  9. TEDUGLUTIDE [Suspect]
     Active Substance: TEDUGLUTIDE
     Dosage: UNK
     Route: 065
     Dates: start: 20230511
  10. TEDUGLUTIDE [Suspect]
     Active Substance: TEDUGLUTIDE
     Dosage: UNK
     Route: 065
     Dates: start: 20230511
  11. TEDUGLUTIDE [Suspect]
     Active Substance: TEDUGLUTIDE
     Dosage: UNK
     Route: 065
     Dates: start: 20230511
  12. TEDUGLUTIDE [Suspect]
     Active Substance: TEDUGLUTIDE
     Dosage: UNK
     Route: 065
     Dates: start: 20230511
  13. TEDUGLUTIDE [Suspect]
     Active Substance: TEDUGLUTIDE
     Dosage: UNK
     Route: 058
  14. TEDUGLUTIDE [Suspect]
     Active Substance: TEDUGLUTIDE
     Dosage: UNK
     Route: 058
  15. TEDUGLUTIDE [Suspect]
     Active Substance: TEDUGLUTIDE
     Dosage: UNK
     Route: 058
  16. TEDUGLUTIDE [Suspect]
     Active Substance: TEDUGLUTIDE
     Dosage: UNK
     Route: 058
  17. TAUROLIDINE [Concomitant]
     Active Substance: TAUROLIDINE
     Dosage: 2 DOSAGE FORM, MONTHLY
     Route: 065
  18. NYSTATIN [Concomitant]
     Active Substance: NYSTATIN
     Dosage: 4 DOSAGE FORM, MONTHLY
     Route: 065
  19. SODIUM CITRATE [Concomitant]
     Active Substance: SODIUM CITRATE
     Dosage: 1 INTERNATIONAL UNIT, MONTHLY
     Route: 065
  20. DIPYRONE [Concomitant]
     Active Substance: DIPYRONE
     Dosage: 1 INTERNATIONAL UNIT, MONTHLY
     Route: 065
  21. HEPARIN [Concomitant]
     Active Substance: HEPARIN SODIUM
     Dosage: 1 INTERNATIONAL UNIT, MONTHLY
     Route: 065
  22. METRONIDAZOLE [Concomitant]
     Active Substance: METRONIDAZOLE
     Dosage: 1 INTERNATIONAL UNIT, MONTHLY
     Route: 065
  23. SULFAMETHOXAZOLE\TRIMETHOPRIM [Concomitant]
     Active Substance: SULFAMETHOXAZOLE\TRIMETHOPRIM
     Dosage: 1 INTERNATIONAL UNIT, MONTHLY
     Route: 065
  24. ACETAMINOPHEN [Concomitant]
     Active Substance: ACETAMINOPHEN
     Dosage: 1 INTERNATIONAL UNIT, MONTHLY
     Route: 065
  25. SIMETHICONE (DIMETHICONE) [Concomitant]
     Active Substance: DIMETHICONE
     Dosage: 1 INTERNATIONAL UNIT, MONTHLY
     Route: 065
  26. Fortinil [Concomitant]
     Dosage: 8 INTERNATIONAL UNIT, MONTHLY
     Route: 065
  27. SALINE [Concomitant]
     Active Substance: SODIUM CHLORIDE
     Dosage: 30 INTERNATIONAL UNIT, MONTHLY
     Route: 065

REACTIONS (13)
  - Drug dependence [Unknown]
  - Abdominal discomfort [Unknown]
  - Abdominal pain lower [Unknown]
  - Abnormal faeces [Unknown]
  - Weight increased [Unknown]
  - Application site pain [Unknown]
  - Multiple allergies [Unknown]
  - Malaise [Unknown]
  - Laboratory test abnormal [Unknown]
  - Sinusitis [Unknown]
  - Influenza [Recovering/Resolving]
  - Cough [Unknown]
  - Nasopharyngitis [Unknown]

NARRATIVE: CASE EVENT DATE: 20240414
